FAERS Safety Report 14911081 (Version 3)
Quarter: 2018Q3

REPORT INFORMATION
  Report Type: Report from Study
  Country: None (occurrence: US)
  Receive Date: 20180518
  Receipt Date: 20180816
  Transmission Date: 20181010
  Serious: Yes (Hospitalization)
  Sender: FDA-Public Use
  Company Number: US-ABBVIE-18K-163-2214877-00

PATIENT
  Age: 69 Year
  Sex: Male

DRUGS (1)
  1. HUMIRA [Suspect]
     Active Substance: ADALIMUMAB
     Indication: CROHN^S DISEASE
     Route: 058
     Dates: start: 201708, end: 201712

REACTIONS (5)
  - Osteomyelitis [Recovering/Resolving]
  - Nausea [Not Recovered/Not Resolved]
  - Vomiting [Not Recovered/Not Resolved]
  - Limb injury [Recovering/Resolving]
  - Device issue [Unknown]

NARRATIVE: CASE EVENT DATE: 201712
